FAERS Safety Report 6500114-6 (Version None)
Quarter: 2009Q4

REPORT INFORMATION
  Report Type: 
  Country: None (occurrence: None)
  Receive Date: 20091216
  Receipt Date: 20091207
  Transmission Date: 20100525
  Serious: Yes (Other)
  Sender: FDA-Public Use
  Company Number: US-JNJFOC-20091202630

PATIENT
  Sex: Male
  Weight: 54.43 kg

DRUGS (6)
  1. SANDOZ FENTANYL TRANSDERMAL SYSTEM [Suspect]
     Indication: PAIN
     Route: 062
  2. PROVIGIL [Concomitant]
     Indication: FATIGUE
     Route: 048
  3. DARVOCET [Concomitant]
     Indication: BREAKTHROUGH PAIN
     Dosage: 100/650 AS NEEDED
     Route: 048
  4. SOMA [Concomitant]
     Indication: MUSCLE SPASMS
     Route: 048
  5. OXYCODONE [Concomitant]
     Indication: BREAKTHROUGH PAIN
     Route: 048
  6. DONNATAL [Concomitant]
     Indication: GASTRIC DISORDER
     Dosage: 1 OR 2 TABLETS
     Route: 048

REACTIONS (4)
  - APPLICATION SITE ERYTHEMA [None]
  - APPLICATION SITE PAIN [None]
  - SLEEP APNOEA SYNDROME [None]
  - WRONG TECHNIQUE IN DRUG USAGE PROCESS [None]
